FAERS Safety Report 10048331 (Version 7)
Quarter: 2015Q3

REPORT INFORMATION
  Report Type: Spontaneous
  Country: US (occurrence: US)
  Receive Date: 20140331
  Receipt Date: 20150817
  Transmission Date: 20151125
  Serious: Yes (Hospitalization, Other)
  Sender: FDA-Public Use
  Company Number: US-GLAXOSMITHKLINE-A1067158A

PATIENT
  Sex: Female

DRUGS (5)
  1. LAMICTAL [Suspect]
     Active Substance: LAMOTRIGINE
     Dosage: 100 MG, U
     Route: 048
     Dates: start: 20100512
  2. LAMICTAL [Suspect]
     Active Substance: LAMOTRIGINE
     Dosage: 200 MG, U
     Route: 048
     Dates: start: 20120706
  3. LAMICTAL [Suspect]
     Active Substance: LAMOTRIGINE
     Indication: BIPOLAR DISORDER
     Dosage: 100 MG150 MG200 MG
     Route: 048
     Dates: start: 20100315
  4. SEROQUEL [Suspect]
     Active Substance: QUETIAPINE FUMARATE
     Indication: PRODUCT USED FOR UNKNOWN INDICATION
     Dosage: 100 MG EVERY AM AND 150 MG AT BEDTIME
     Route: 065
  5. LAMICTAL [Suspect]
     Active Substance: LAMOTRIGINE
     Dosage: 150 MG, U
     Route: 048

REACTIONS (11)
  - Mental disorder [Not Recovered/Not Resolved]
  - Emotional disorder [Unknown]
  - Emotional distress [Unknown]
  - Hospitalisation [Unknown]
  - Bipolar disorder [Unknown]
  - Suicide attempt [Unknown]
  - Crying [Unknown]
  - Dyspnoea [Not Recovered/Not Resolved]
  - Hepatic cancer [Unknown]
  - Suture insertion [Not Recovered/Not Resolved]
  - Adjustment disorder [Unknown]
